FAERS Safety Report 19533752 (Version 3)
Quarter: 2022Q3

REPORT INFORMATION
  Report Type: Spontaneous
  Country: US (occurrence: US)
  Receive Date: 20210713
  Receipt Date: 20220908
  Transmission Date: 20221027
  Serious: Yes (Other)
  Sender: FDA-Public Use
  Company Number: US-SANOFI-00674843

PATIENT
  Age: 47 Year
  Sex: Female

DRUGS (1)
  1. DUPIXENT [Suspect]
     Active Substance: DUPILUMAB
     Indication: Dermatitis atopic
     Dosage: 300 MG, QOW

REACTIONS (7)
  - Cataract [Unknown]
  - Retinal oedema [Unknown]
  - Eyelid margin crusting [Unknown]
  - Visual impairment [Unknown]
  - Menopause [Unknown]
  - Dry eye [Unknown]
  - Surgery [Unknown]
